FAERS Safety Report 17984193 (Version 2)
Quarter: 2020Q3

REPORT INFORMATION
  Report Type: Spontaneous
  Country: PT (occurrence: PT)
  Receive Date: 20200706
  Receipt Date: 20200804
  Transmission Date: 20201103
  Serious: Yes (Life-Threatening, Hospitalization)
  Sender: FDA-Public Use
  Company Number: PT-JNJFOC-20200636061

PATIENT
  Age: 64 Year
  Sex: Male

DRUGS (2)
  1. EDURANT [Suspect]
     Active Substance: RILPIVIRINE HYDROCHLORIDE
     Indication: HIV INFECTION
     Route: 065
  2. DOLUTEGRAVIR [Suspect]
     Active Substance: DOLUTEGRAVIR
     Indication: HIV INFECTION
     Route: 065

REACTIONS (7)
  - Septic shock [Recovered/Resolved]
  - Pneumonia klebsiella [Unknown]
  - Dependence on respirator [Recovered/Resolved]
  - Acute respiratory distress syndrome [Recovered/Resolved]
  - COVID-19 pneumonia [Recovered/Resolved]
  - Subclavian vein thrombosis [Recovered/Resolved]
  - COVID-19 [Recovered/Resolved]
